FAERS Safety Report 16705697 (Version 1)
Quarter: 2019Q3

REPORT INFORMATION
  Report Type: Spontaneous
  Country: US (occurrence: US)
  Receive Date: 20190815
  Receipt Date: 20190815
  Transmission Date: 20191004
  Serious: No
  Sender: FDA-Public Use
  Company Number: US-BAYER-2019-150749

PATIENT
  Age: 67 Year
  Sex: Female

DRUGS (3)
  1. VITAMINS NOS [Concomitant]
     Active Substance: VITAMINS
  2. ESTRADIOL. [Suspect]
     Active Substance: ESTRADIOL
     Route: 062
  3. IMVEXXY [Concomitant]
     Active Substance: ESTRADIOL

REACTIONS (2)
  - Incorrect dose administered by product [None]
  - Product adhesion issue [None]
